FAERS Safety Report 9589270 (Version 1)
Quarter: 2013Q4

REPORT INFORMATION
  Report Type: Spontaneous
  Country: US (occurrence: US)
  Receive Date: 20131003
  Receipt Date: 20131003
  Transmission Date: 20140711
  Serious: No
  Sender: FDA-Public Use
  Company Number: US-AMGEN-USASP2012069609

PATIENT
  Sex: Male

DRUGS (7)
  1. ENBREL [Suspect]
     Indication: RHEUMATOID ARTHRITIS
     Dosage: 50 MG/ML, QWK
     Route: 058
  2. ULTRAM [Concomitant]
     Dosage: 50 MG, UNK
  3. NEXIUM                             /01479302/ [Concomitant]
     Dosage: 20 MG, UNK
  4. PRAVASTATIN [Concomitant]
     Dosage: 10 MG, UNK
  5. ASPIRIN LOW [Concomitant]
     Dosage: 81 MG, EC
  6. FOLIC ACID [Concomitant]
     Dosage: 1 MG, UNK
  7. METHOTREXATE [Concomitant]
     Dosage: UNK

REACTIONS (1)
  - Drug ineffective [Unknown]
